FAERS Safety Report 5859885-4 (Version None)
Quarter: 2008Q3

REPORT INFORMATION
  Report Type: 
  Country: None (occurrence: None)
  Receive Date: 20080818
  Receipt Date: 20080630
  Transmission Date: 20090109
  Serious: No
  Sender: FDA-Public Use
  Company Number: WAES 0807USA00051

PATIENT
  Age: 55 Year
  Sex: Male

DRUGS (4)
  1. JANUVIA [Suspect]
     Indication: BLOOD GLUCOSE
     Dosage: 100 MG/DAILY/PO
     Route: 047
     Dates: start: 20080501
  2. DIOVAN [Concomitant]
  3. ZOCOR [Concomitant]
  4. METFORMIN HCL [Concomitant]

REACTIONS (1)
  - DERMATITIS EXFOLIATIVE [None]
